FAERS Safety Report 7005322-6 (Version None)
Quarter: 2010Q3

REPORT INFORMATION
  Report Type: 
  Country: None (occurrence: None)
  Receive Date: 20100921
  Receipt Date: 20100323
  Transmission Date: 20110219
  Serious: Yes (Other)
  Sender: FDA-Public Use
  Company Number: US-BAYER-201014099NA

PATIENT
  Age: 54 Year
  Sex: Female

DRUGS (8)
  1. YASMIN [Suspect]
     Indication: PREMENSTRUAL SYNDROME
     Route: 048
     Dates: start: 20060101, end: 20070101
  2. PROZAC [Concomitant]
     Indication: SLEEP DISORDER
     Dates: start: 20080101, end: 20100101
  3. CARISOPRODOL [Concomitant]
     Dates: start: 20061227
  4. DICLOFENAC [Concomitant]
     Dates: start: 20061227
  5. HYDROCODONE BITARTRATE AND ACETAMINOPHEN [Concomitant]
     Dates: start: 20070118
  6. METHYLPREDNISOLONE ACETATE [Concomitant]
     Dates: start: 20070118
  7. SULFAMETHOXAZOLE AND TRIMETHOPRIM DOUBLE STRENGTH [Concomitant]
     Dates: start: 20070118
  8. PREMPRO [Concomitant]

REACTIONS (2)
  - DYSPNOEA [None]
  - PULMONARY EMBOLISM [None]
